FAERS Safety Report 24599607 (Version 9)
Quarter: 2025Q4

REPORT INFORMATION
  Report Type: Spontaneous
  Country: US (occurrence: US)
  Receive Date: 20241110
  Receipt Date: 20251007
  Transmission Date: 20260118
  Serious: Yes (Hospitalization, Other)
  Sender: SANOFI AVENTIS
  Company Number: US-SA-2024SA322751

PATIENT
  Age: 61 Year
  Sex: Male
  Weight: 64.399 kg

DRUGS (4)
  1. ELOCTATE [Suspect]
     Active Substance: EFMOROCTOCOG ALFA
     Indication: Factor VIII deficiency
     Dosage: 4000 UNITS (3600-4400), BIW
     Route: 042
     Dates: start: 201601
  2. ELOCTATE [Suspect]
     Active Substance: EFMOROCTOCOG ALFA
     Indication: Factor VIII deficiency
     Dosage: 4000 UNITS (3600-4400), BIW
     Route: 042
     Dates: start: 201601
  3. ELOCTATE [Suspect]
     Active Substance: EFMOROCTOCOG ALFA
     Indication: Haemorrhage
     Dosage: 4000 U, PRN
     Route: 042
     Dates: start: 201601
  4. ELOCTATE [Suspect]
     Active Substance: EFMOROCTOCOG ALFA
     Indication: Haemorrhage
     Dosage: 4000 U, PRN
     Route: 042
     Dates: start: 201601

REACTIONS (17)
  - Nephrolithiasis [Unknown]
  - Fall [Unknown]
  - Craniocerebral injury [Unknown]
  - Injury [Unknown]
  - Traumatic haemorrhage [Recovered/Resolved]
  - Fall [Unknown]
  - Head injury [Unknown]
  - Hospitalisation [Unknown]
  - Fall [Unknown]
  - Head injury [Unknown]
  - Haemorrhage [Recovered/Resolved]
  - Haemorrhage [Recovered/Resolved]
  - Haemorrhage [Unknown]
  - Poor venous access [Unknown]
  - Weight increased [Unknown]
  - Tremor [Unknown]
  - Haemorrhage [Unknown]

NARRATIVE: CASE EVENT DATE: 20241022
